FAERS Safety Report 12560699 (Version 2)
Quarter: 2016Q3

REPORT INFORMATION
  Report Type: Spontaneous
  Country: US (occurrence: US)
  Receive Date: 20160715
  Receipt Date: 20160927
  Transmission Date: 20161109
  Serious: No
  Sender: FDA-Public Use
  Company Number: US-BEH-2016071156

PATIENT
  Sex: Male
  Weight: 70.75 kg

DRUGS (30)
  1. HIZENTRA [Suspect]
     Active Substance: HUMAN IMMUNOGLOBULIN G
     Dosage: UNK
     Route: 058
  2. ACETYL L-CARNITINE [Concomitant]
     Active Substance: ACETYLCARNITINE
  3. OXYGEN. [Concomitant]
     Active Substance: OXYGEN
  4. COENZYME Q10 [Concomitant]
     Active Substance: UBIDECARENONE
  5. PAROXETINE. [Concomitant]
     Active Substance: PAROXETINE
  6. ALBUTEROL                          /00139501/ [Concomitant]
     Active Substance: ALBUTEROL
  7. METOPROLOL. [Concomitant]
     Active Substance: METOPROLOL
  8. HIZENTRA [Suspect]
     Active Substance: HUMAN IMMUNOGLOBULIN G
     Indication: IMMUNODEFICIENCY COMMON VARIABLE
     Dosage: UNK
     Route: 058
  9. CYANOCOBALAMIN. [Concomitant]
     Active Substance: CYANOCOBALAMIN
  10. BUTORPHANOL [Concomitant]
     Active Substance: BUTORPHANOL
  11. DIAZEPAM. [Concomitant]
     Active Substance: DIAZEPAM
  12. LIDODERM [Concomitant]
     Active Substance: LIDOCAINE
  13. ADDERALL [Concomitant]
     Active Substance: AMPHETAMINE ASPARTATE\AMPHETAMINE SULFATE\DEXTROAMPHETAMINE SACCHARATE\DEXTROAMPHETAMINE SULFATE
  14. HIZENTRA [Suspect]
     Active Substance: HUMAN IMMUNOGLOBULIN G
     Dosage: UNK
     Route: 058
  15. HIZENTRA [Suspect]
     Active Substance: HUMAN IMMUNOGLOBULIN G
     Dosage: 7 G, QW
     Route: 058
  16. RIBOFLAVIN [Concomitant]
     Active Substance: RIBOFLAVIN
  17. NORCO [Concomitant]
     Active Substance: ACETAMINOPHEN\HYDROCODONE BITARTRATE
  18. MODAFINIL. [Concomitant]
     Active Substance: MODAFINIL
  19. OXYCODONE [Concomitant]
     Active Substance: OXYCODONE
  20. EPIPEN [Concomitant]
     Active Substance: EPINEPHRINE
  21. CLONIDINE. [Concomitant]
     Active Substance: CLONIDINE
  22. HYDRALAZINE [Concomitant]
     Active Substance: HYDRALAZINE HYDROCHLORIDE
  23. AZITHROMYCIN ANHYDROUS. [Concomitant]
     Active Substance: AZITHROMYCIN ANHYDROUS
  24. LEVOFLOXACIN. [Concomitant]
     Active Substance: LEVOFLOXACIN
  25. PRILOSEC [Concomitant]
     Active Substance: OMEPRAZOLE MAGNESIUM
  26. TESTOSTERONE. [Concomitant]
     Active Substance: TESTOSTERONE
  27. FLEXERIL [Concomitant]
     Active Substance: CYCLOBENZAPRINE HYDROCHLORIDE
  28. DIPHENHYDRAMINE. [Concomitant]
     Active Substance: DIPHENHYDRAMINE
  29. CARVEDILOL. [Concomitant]
     Active Substance: CARVEDILOL
  30. CORTISONE [Concomitant]
     Active Substance: CORTISONE\HYDROCORTISONE

REACTIONS (1)
  - Malaise [Unknown]
